FAERS Safety Report 4763245-7 (Version None)
Quarter: 2005Q3

REPORT INFORMATION
  Report Type: 
  Country: None (occurrence: None)
  Receive Date: 20050902
  Receipt Date: 20050602
  Transmission Date: 20060218
  Serious: Yes (Hospitalization)
  Sender: FDA-Public Use
  Company Number: 2005-128991-NL

PATIENT
  Age: 58 Year
  Sex: Female

DRUGS (12)
  1. MIRTAZAPINE [Suspect]
     Dosage: 15 MG/30 MG ORAL
     Route: 048
     Dates: start: 20050111, end: 20050113
  2. MIRTAZAPINE [Suspect]
     Dosage: 15 MG/30 MG ORAL
     Route: 048
     Dates: start: 20050114
  3. AMISULPRIDE [Suspect]
     Dosage: 200 MG/400 MG ORAL
     Route: 048
     Dates: start: 20050111, end: 20050118
  4. AMISULPRIDE [Suspect]
     Dosage: 200 MG/400 MG ORAL
     Route: 048
     Dates: start: 20050119, end: 20050202
  5. PANTOPRAZOLE SODIUM [Concomitant]
  6. OXAZEPAM [Concomitant]
  7. AMOXICILLIN TRIHYDRATE [Concomitant]
  8. ASPIRIN [Concomitant]
  9. ANDURSIL [Concomitant]
  10. TROXERUTIN [Concomitant]
  11. ACETYLCYSTEINE [Concomitant]
  12. PARACETAMOL [Concomitant]

REACTIONS (3)
  - BRONCHITIS [None]
  - OEDEMA PERIPHERAL [None]
  - PAIN IN EXTREMITY [None]
